FAERS Safety Report 13901802 (Version 1)
Quarter: 2017Q3

REPORT INFORMATION
  Report Type: Spontaneous
  Country: US (occurrence: US)
  Receive Date: 20170824
  Receipt Date: 20170824
  Transmission Date: 20171127
  Serious: No
  Sender: FDA-Public Use
  Company Number: US-ROCHE-1125880

PATIENT
  Age: 66 Year
  Sex: Female

DRUGS (7)
  1. HERCEPTIN [Suspect]
     Active Substance: TRASTUZUMAB
     Indication: BREAST CANCER
     Route: 042
  2. BENADRYL [Concomitant]
     Active Substance: DIPHENHYDRAMINE HYDROCHLORIDE
  3. DECADRON [Concomitant]
     Active Substance: DEXAMETHASONE
  4. TYLENOL [Concomitant]
     Active Substance: ACETAMINOPHEN
     Route: 050
  5. HERCEPTIN [Suspect]
     Active Substance: TRASTUZUMAB
     Route: 065
  6. TAXOTERE [Concomitant]
     Active Substance: DOCETAXEL
     Route: 065
  7. INSULIN [Concomitant]
     Active Substance: INSULIN NOS

REACTIONS (2)
  - Vulvovaginal dryness [Unknown]
  - Pain [Unknown]

NARRATIVE: CASE EVENT DATE: 20000424
